FAERS Safety Report 13651603 (Version 1)
Quarter: 2017Q2

REPORT INFORMATION
  Report Type: Spontaneous
  Country: JP (occurrence: JP)
  Receive Date: 20170614
  Receipt Date: 20170614
  Transmission Date: 20170830
  Serious: Yes (Death)
  Sender: FDA-Public Use
  Company Number: JP-PFIZER INC-2017256996

PATIENT
  Age: 82 Year
  Sex: Female

DRUGS (1)
  1. MEROPENEM 0.5G PFIZER [Suspect]
     Active Substance: MEROPENEM
     Dosage: UNK
     Route: 042
     Dates: start: 201501, end: 201502

REACTIONS (1)
  - Toxic epidermal necrolysis [Fatal]
